FAERS Safety Report 14784838 (Version 1)
Quarter: 2018Q2

REPORT INFORMATION
  Report Type: Report from Study
  Country: CO (occurrence: CO)
  Receive Date: 20180420
  Receipt Date: 20180420
  Transmission Date: 20180711
  Serious: Yes (Hospitalization)
  Sender: FDA-Public Use
  Company Number: PHHY2017CO106439

PATIENT
  Age: 76 Year
  Sex: Female
  Weight: 53 kg

DRUGS (1)
  1. SANDOSTATIN LAR DEPOT [Suspect]
     Active Substance: OCTREOTIDE ACETATE
     Indication: GASTROENTEROPANCREATIC NEUROENDOCRINE TUMOUR DISEASE
     Dosage: 30 MG, ONCE A MONTH
     Route: 030
     Dates: start: 20170525, end: 20180314

REACTIONS (8)
  - Vomiting [Unknown]
  - Malaise [Unknown]
  - Amnesia [Unknown]
  - Decreased appetite [Unknown]
  - Swelling [Unknown]
  - Weight decreased [Unknown]
  - Neck pain [Unknown]
  - Swelling face [Unknown]

NARRATIVE: CASE EVENT DATE: 20170525
